FAERS Safety Report 8362037-X (Version None)
Quarter: 2012Q2

REPORT INFORMATION
  Report Type: 
  Country: None (occurrence: None)
  Receive Date: 20120515
  Receipt Date: 20120507
  Transmission Date: 20120825
  Serious: Yes (Disabling)
  Sender: FDA-Public Use
  Company Number: ZA-B.I. PHARMACEUTICALS,INC./RIDGEFIELD-2012-AP-00332ZA

PATIENT
  Age: 85 Year
  Sex: Male

DRUGS (4)
  1. STATIN [Concomitant]
  2. TREPALINE [Concomitant]
  3. TRAMADOL HYDROCHLORIDE/ACETAMINOPHEN [Concomitant]
  4. PRADAXA [Suspect]
     Indication: KNEE ARTHROPLASTY
     Dosage: 150 MG

REACTIONS (3)
  - OEDEMA PERIPHERAL [None]
  - HAEMORRHAGE [None]
  - CONTUSION [None]
